FAERS Safety Report 17466711 (Version 2)
Quarter: 2020Q1

REPORT INFORMATION
  Report Type: Spontaneous
  Country: CZ (occurrence: CZ)
  Receive Date: 20200227
  Receipt Date: 20200305
  Transmission Date: 20200409
  Serious: Yes (Hospitalization, Other)
  Sender: FDA-Public Use
  Company Number: NVSC2019CZ041433

PATIENT
  Age: 45 Year
  Sex: Female

DRUGS (9)
  1. WARFARIN SODIUM. [Interacting]
     Active Substance: WARFARIN SODIUM
     Indication: DEEP VEIN THROMBOSIS
     Dosage: 5 MG, QD
     Route: 065
  2. CEFUROXIME. [Suspect]
     Active Substance: CEFUROXIME
     Indication: PRODUCT USED FOR UNKNOWN INDICATION
     Dosage: UNK UNK, QD
     Route: 048
  3. LOW MOLECULAR WEIGHT HEPARIN [Suspect]
     Active Substance: UNSPECIFIED INGREDIENT
     Indication: PRODUCT USED FOR UNKNOWN INDICATION
     Dosage: UNK
     Route: 065
  4. VALPROATE SODIUM. [Interacting]
     Active Substance: VALPROATE SODIUM
     Indication: PRODUCT USED FOR UNKNOWN INDICATION
     Dosage: UNK UNK, QD
     Route: 048
  5. LEVETIRACETAM. [Suspect]
     Active Substance: LEVETIRACETAM
     Indication: PRODUCT USED FOR UNKNOWN INDICATION
     Dosage: UNK
     Route: 065
  6. SALMETEROL [Suspect]
     Active Substance: SALMETEROL
     Indication: PRODUCT USED FOR UNKNOWN INDICATION
     Dosage: UNK
     Route: 065
  7. VALPROIC ACID. [Suspect]
     Active Substance: VALPROIC ACID
     Indication: PRODUCT USED FOR UNKNOWN INDICATION
     Route: 048
  8. METRONIDAZOLE. [Suspect]
     Active Substance: METRONIDAZOLE
     Indication: PRODUCT USED FOR UNKNOWN INDICATION
     Dosage: UNK
     Route: 048
  9. WARFARIN SODIUM. [Interacting]
     Active Substance: WARFARIN SODIUM
     Indication: PROPHYLAXIS

REACTIONS (10)
  - Drug interaction [Unknown]
  - Therapeutic response decreased [Unknown]
  - Ecchymosis [Recovered/Resolved]
  - International normalised ratio increased [Recovered/Resolved]
  - Haematoma [Recovered/Resolved]
  - Abdominal abscess [Recovering/Resolving]
  - Cellulitis [Recovered/Resolved]
  - Skin necrosis [Recovered/Resolved]
  - Petechiae [Recovered/Resolved]
  - Erysipelas [Recovered/Resolved]
